FAERS Safety Report 9965207 (Version 1)
Quarter: 2014Q1

REPORT INFORMATION
  Report Type: Report from Study
  Country: US (occurrence: US)
  Receive Date: 20140305
  Receipt Date: 20140305
  Transmission Date: 20141002
  Serious: No
  Sender: FDA-Public Use
  Company Number: US-ABBVIE-13P-163-1125161-00

PATIENT
  Age: 44 Year
  Sex: Female
  Weight: 93.52 kg

DRUGS (2)
  1. HUMIRA [Suspect]
     Indication: PSORIATIC ARTHROPATHY
     Dates: start: 201303
  2. LEVOTHYROXINE [Concomitant]
     Indication: PRODUCT USED FOR UNKNOWN INDICATION

REACTIONS (6)
  - Sinus headache [Unknown]
  - Dry skin [Unknown]
  - Dry skin [Unknown]
  - Sinusitis [Unknown]
  - Dry skin [Unknown]
  - Skin exfoliation [Unknown]
